FAERS Safety Report 8530882-3 (Version None)
Quarter: 2012Q3

REPORT INFORMATION
  Report Type: 
  Country: None (occurrence: None)
  Receive Date: 20120723
  Receipt Date: 20120716
  Transmission Date: 20120928
  Serious: Yes (Hospitalization)
  Sender: FDA-Public Use
  Company Number: US-ROCHE-1088014

PATIENT
  Age: 27 Year
  Sex: Female
  Weight: 93.39 kg

DRUGS (3)
  1. AVASTIN [Suspect]
     Indication: OVARIAN EPITHELIAL CANCER
     Dosage: DOSE:15MG/KG OVER 30-90 MINUTES ON DAY 1 OF CYCLE 2+,CYCLE=21 DAYS, LAST DOSE ADMINISTERED ON 21/MAY
     Route: 042
     Dates: start: 20120213
  2. CARBOPLATIN [Suspect]
     Indication: OVARIAN EPITHELIAL CANCER
     Dosage: DOSE: AUC= 6 ON DAY 1(CYCLES1-6) CYCLE=21 DAYS, LAST ADMINISTERED ON 21/MAY/2012
     Route: 042
     Dates: start: 20120213
  3. DOCETAXEL [Suspect]
     Indication: OVARIAN EPITHELIAL CANCER
     Dosage: DOSE: 75 MG/M2 OVER 3 HOURS ON DAY 1 (1-6 CYCLES),CYCLE=21 DAYS, LAST DOSE ADMINISTERED ON 21/MAY/20
     Route: 042
     Dates: start: 20120213

REACTIONS (2)
  - FEBRILE NEUTROPENIA [None]
  - SINUS TACHYCARDIA [None]
